FAERS Safety Report 25158463 (Version 3)
Quarter: 2025Q2

REPORT INFORMATION
  Report Type: Spontaneous
  Country: US (occurrence: US)
  Receive Date: 20250404
  Receipt Date: 20250417
  Transmission Date: 20250717
  Serious: No
  Sender: Haleon PLC
  Company Number: US-HALEON-2236420

PATIENT
  Age: 50 Year
  Sex: Female

DRUGS (1)
  1. ADVIL LIQUI-GELS [Suspect]
     Active Substance: IBUPROFEN
     Indication: Product used for unknown indication
     Dates: start: 20250320, end: 20250320

REACTIONS (5)
  - Oral discomfort [Recovered/Resolved]
  - Product physical issue [Unknown]
  - Dyspepsia [Unknown]
  - Incorrect dose administered [Unknown]
  - Skin burning sensation [Unknown]

NARRATIVE: CASE EVENT DATE: 20250320
